FAERS Safety Report 9465503 (Version 1)
Quarter: 2013Q3

REPORT INFORMATION
  Report Type: Spontaneous
  Country: CA (occurrence: CA)
  Receive Date: 20130820
  Receipt Date: 20130820
  Transmission Date: 20140515
  Serious: Yes (Other)
  Sender: FDA-Public Use
  Company Number: CA-BRISTOL-MYERS SQUIBB COMPANY-19183276

PATIENT
  Sex: Male

DRUGS (1)
  1. ONGLYZA TABS 5 MG [Suspect]

REACTIONS (1)
  - Gastrointestinal neoplasm [Unknown]
